FAERS Safety Report 4998631-3 (Version None)
Quarter: 2006Q2

REPORT INFORMATION
  Report Type: 
  Country: None (occurrence: None)
  Receive Date: 20060509
  Receipt Date: 20060424
  Transmission Date: 20061013
  Serious: Yes (Hospitalization)
  Sender: FDA-Public Use
  Company Number: GXKR2006SE02277

PATIENT
  Age: 48 Year
  Sex: Female

DRUGS (8)
  1. FLUOXETINE SANDOZ (NGX) (FLUOXETINE) [Suspect]
     Indication: DEPRESSION
     Dosage: 20 MG, ORAL
     Route: 048
     Dates: start: 20060209, end: 20060219
  2. SALURES (BENDROFLUMETHIAZIDE) [Suspect]
     Indication: HYPERTENSION
     Dosage: 20 MG, ORAL
     Route: 048
     Dates: start: 20060209, end: 20060219
  3. MOVICOL (MARCROGOL, POTASSIUM CHLORIDE, SODIUM BICARBONATE, SODIUM CHL [Concomitant]
  4. OPTIMOL (TIMOLOL MALEATE) EYE DROPS [Suspect]
  5. SOBRIL (OXAZEPAM) TABLET [Concomitant]
  6. OMEGA 3 (FISH OIL) CAPSULE [Concomitant]
  7. DIVINA PLUS (ESTRADIOL VALERATE, MEDROXYPROGESTERONE ACETATE) TABLET [Concomitant]
  8. AZOPT (BRINZOLAMIDE) EYE DROPS [Concomitant]

REACTIONS (7)
  - ABDOMINAL PAIN UPPER [None]
  - CHEST PAIN [None]
  - DISCOMFORT [None]
  - GASTRITIS [None]
  - HIATUS HERNIA [None]
  - HYPOKALAEMIA [None]
  - HYPONATRAEMIA [None]
